FAERS Safety Report 22631051 (Version 3)
Quarter: 2024Q2

REPORT INFORMATION
  Report Type: Report from Study
  Country: US (occurrence: US)
  Receive Date: 20230622
  Receipt Date: 20240419
  Transmission Date: 20240716
  Serious: No
  Sender: FDA-Public Use
  Company Number: US-ACADIA PHARMACEUTICALS INC.-ACA-2023-TRF-002096

PATIENT
  Age: 38 Year
  Sex: Female

DRUGS (4)
  1. DAYBUE [Suspect]
     Active Substance: TROFINETIDE
     Indication: Rett syndrome
     Dosage: 25 MILLILITER, BID
     Route: 048
     Dates: start: 20230524
  2. DAYBUE [Suspect]
     Active Substance: TROFINETIDE
     Dosage: HEN EVERY 3 DAYS WENT UP BY 5ML AND IS NOW AT FULL DOSE OF 50ML
     Route: 048
  3. DAYBUE [Suspect]
     Active Substance: TROFINETIDE
     Dosage: 50 MILLILITER, BID
     Route: 048
     Dates: end: 20230603
  4. DAYBUE [Suspect]
     Active Substance: TROFINETIDE
     Dosage: 50 MILLILITER, BID
     Route: 048

REACTIONS (8)
  - Product dose omission issue [Unknown]
  - Adverse drug reaction [Unknown]
  - Nausea [Not Recovered/Not Resolved]
  - Underdose [Recovered/Resolved]
  - Diarrhoea [Not Recovered/Not Resolved]
  - Vomiting [Not Recovered/Not Resolved]
  - Diarrhoea [Unknown]
  - Vomiting [Unknown]

NARRATIVE: CASE EVENT DATE: 20230501
